FAERS Safety Report 5118764-0 (Version None)
Quarter: 2006Q4

REPORT INFORMATION
  Report Type: 
  Country: None (occurrence: None)
  Receive Date: 20061002
  Receipt Date: 20060913
  Transmission Date: 20070319
  Serious: Yes (Hospitalization)
  Sender: FDA-Public Use
  Company Number: JP-ROCHE-463616

PATIENT
  Age: 82 Year
  Sex: Female

DRUGS (3)
  1. ROCALTROL [Suspect]
     Indication: PARKINSON'S DISEASE
     Route: 048
     Dates: start: 20060215, end: 20060706
  2. MADOPAR [Suspect]
     Indication: PARKINSON'S DISEASE
     Route: 048
     Dates: start: 20060303, end: 20060706
  3. CALCIUM ASPARTATE [Concomitant]
     Dosage: TRADE NAME REPORTED AS 'ASTOS-CA'
     Route: 048
     Dates: start: 20060215, end: 20060706

REACTIONS (2)
  - HEPATIC FUNCTION ABNORMAL [None]
  - WHITE BLOOD CELL COUNT DECREASED [None]
